FAERS Safety Report 20741200 (Version 2)
Quarter: 2022Q2

REPORT INFORMATION
  Report Type: Spontaneous
  Country: IT (occurrence: IT)
  Receive Date: 20220422
  Receipt Date: 20220516
  Transmission Date: 20220721
  Serious: Yes (Death)
  Sender: FDA-Public Use
  Company Number: None

PATIENT
  Age: 79 Year
  Sex: Male
  Weight: 87 kg

DRUGS (1)
  1. GEMCITABINE HYDROCHLORIDE [Suspect]
     Active Substance: GEMCITABINE HYDROCHLORIDE
     Indication: Bladder cancer
     Dosage: 1600 MG, CYCLICAL
     Route: 042
     Dates: start: 20220316, end: 20220323

REACTIONS (2)
  - Renal failure [Fatal]
  - Pancytopenia [Fatal]

NARRATIVE: CASE EVENT DATE: 20220328
